FAERS Safety Report 23558858 (Version 1)
Quarter: 2024Q1

REPORT INFORMATION
  Report Type: Spontaneous
  Country: US (occurrence: US)
  Receive Date: 20240223
  Receipt Date: 20240223
  Transmission Date: 20240410
  Serious: No
  Sender: FDA-Public Use
  Company Number: US-CARLSBAD-2024USCTISPO00003

PATIENT
  Age: 78 Year
  Sex: Male

DRUGS (2)
  1. LOVASTATIN [Suspect]
     Active Substance: LOVASTATIN
     Indication: Blood cholesterol increased
     Route: 065
  2. ENZALUTAMIDE [Suspect]
     Active Substance: ENZALUTAMIDE
     Indication: Product used for unknown indication
     Route: 065

REACTIONS (1)
  - Drug ineffective [Unknown]

NARRATIVE: CASE EVENT DATE: 20231018
